FAERS Safety Report 7687686-3 (Version None)
Quarter: 2011Q3

REPORT INFORMATION
  Report Type: 
  Country: None (occurrence: None)
  Receive Date: 20110817
  Receipt Date: 20110812
  Transmission Date: 20111222
  Serious: Yes (Life-Threatening)
  Sender: FDA-Public Use
  Company Number: PHHY2011BR73193

PATIENT

DRUGS (1)
  1. EXFORGE HCT [Suspect]
     Dosage: UNK UKN, UNK

REACTIONS (18)
  - BLOOD GLUCOSE INCREASED [None]
  - FLATULENCE [None]
  - INSOMNIA [None]
  - DIARRHOEA [None]
  - BLOOD CHOLESTEROL INCREASED [None]
  - PARALYSIS [None]
  - LUNG DISORDER [None]
  - EYE PAIN [None]
  - VULVOVAGINAL DISCOMFORT [None]
  - DECREASED APPETITE [None]
  - DIZZINESS [None]
  - PRURITUS [None]
  - HEADACHE [None]
  - MASS [None]
  - DYSGEUSIA [None]
  - ANORECTAL DISCOMFORT [None]
  - COUGH [None]
  - DYSPNOEA [None]
